FAERS Safety Report 9099224 (Version 1)
Quarter: 2013Q1

REPORT INFORMATION
  Report Type: Spontaneous
  Country: US (occurrence: US)
  Receive Date: 20130214
  Receipt Date: 20130214
  Transmission Date: 20140127
  Serious: Yes (Other)
  Sender: FDA-Public Use
  Company Number: US-MEDICIS-2013P1001992

PATIENT
  Sex: Female

DRUGS (1)
  1. ESOTERICA UNSPECIFIED [Suspect]

REACTIONS (2)
  - Deafness [Unknown]
  - Blindness [Unknown]
